FAERS Safety Report 8593918-X (Version None)
Quarter: 2012Q3

REPORT INFORMATION
  Report Type: 
  Country: None (occurrence: None)
  Receive Date: 20120814
  Receipt Date: 20120806
  Transmission Date: 20120928
  Serious: Yes (Hospitalization, Other)
  Sender: FDA-Public Use
  Company Number: FR-ABBOTT-12P-056-0965663-00

PATIENT
  Sex: Male

DRUGS (2)
  1. METHOTREXATE [Suspect]
     Indication: RHEUMATOID ARTHRITIS
     Route: 042
     Dates: start: 20100101, end: 20120401
  2. HUMIRA [Suspect]
     Indication: RHEUMATOID ARTHRITIS
     Route: 058
     Dates: start: 20100101, end: 20120401

REACTIONS (12)
  - PANCREATIC CARCINOMA METASTATIC [None]
  - DUODENAL ULCER [None]
  - CHEST PAIN [None]
  - MELAENA [None]
  - VOMITING PROJECTILE [None]
  - GASTROOESOPHAGEAL REFLUX DISEASE [None]
  - TOXICITY TO VARIOUS AGENTS [None]
  - ABDOMINAL PAIN UPPER [None]
  - HEPATIC NEOPLASM MALIGNANT [None]
  - PULMONARY EMBOLISM [None]
  - DUODENAL STENOSIS [None]
  - WEIGHT DECREASED [None]
